FAERS Safety Report 19591584 (Version 1)
Quarter: 2021Q3

REPORT INFORMATION
  Report Type: Spontaneous
  Country: US (occurrence: US)
  Receive Date: 20210720
  Receipt Date: 20210720
  Transmission Date: 20211014
  Serious: Yes (Disabling)
  Sender: FDA-Public Use
  Company Number: None

PATIENT
  Sex: Male
  Weight: 113.4 kg

DRUGS (2)
  1. 7 G HYBRID TKO BY TERP NATION 8 HEMP FLOWER DELTA?8 (CANNABIDIOL\.DELTA.8?TETRAHYDROCANNABINOL\HERBALS) [Suspect]
     Active Substance: CANNABIDIOL\.DELTA.8-TETRAHYDROCANNABINOL\HERBALS
     Indication: PAIN MANAGEMENT
     Route: 048
     Dates: start: 20210717, end: 20210717
  2. 7 G HYBRID TKO BY TERP NATION 8 HEMP FLOWER DELTA?8 (CANNABIDIOL\.DELTA.8?TETRAHYDROCANNABINOL\HERBALS) [Suspect]
     Active Substance: CANNABIDIOL\.DELTA.8-TETRAHYDROCANNABINOL\HERBALS
     Indication: ANXIETY

REACTIONS (8)
  - Dysarthria [None]
  - Nausea [None]
  - Heart rate increased [None]
  - Confusional state [None]
  - Lethargy [None]
  - Hypopnoea [None]
  - Eye movement disorder [None]
  - Somnolence [None]

NARRATIVE: CASE EVENT DATE: 20210717
